FAERS Safety Report 18538028 (Version 2)
Quarter: 2020Q4

REPORT INFORMATION
  Report Type: Report from Study
  Country: None (occurrence: US)
  Receive Date: 20201124
  Receipt Date: 20201227
  Transmission Date: 20210114
  Serious: Yes (Hospitalization, Other)
  Sender: FDA-Public Use
  Company Number: US-ABBVIE-20K-163-3656349-00

PATIENT
  Age: 65 Year
  Sex: Male
  Weight: 89.44 kg

DRUGS (5)
  1. STEROIDS [Concomitant]
     Active Substance: UNSPECIFIED INGREDIENT
     Indication: PRODUCT USED FOR UNKNOWN INDICATION
  2. FENOFIBRATE. [Concomitant]
     Active Substance: FENOFIBRATE
     Indication: BLOOD TRIGLYCERIDES DECREASED
  3. APRESOLINE HYDROCHLORIDE [Concomitant]
     Active Substance: HYDRALAZINE HYDROCHLORIDE
     Indication: COLITIS ULCERATIVE
  4. HUMIRA [Suspect]
     Active Substance: ADALIMUMAB
     Indication: COLITIS ULCERATIVE
     Dosage: CITRATE FREE
     Route: 058
     Dates: end: 20201017
  5. HYDROCHLOROTHIAZIDE. [Concomitant]
     Active Substance: HYDROCHLOROTHIAZIDE
     Indication: HYPERTENSION

REACTIONS (9)
  - Colitis ulcerative [Recovered/Resolved]
  - Immunosuppression [Recovering/Resolving]
  - Hepatic infection [Unknown]
  - Pain [Recovered/Resolved]
  - Insomnia [Unknown]
  - Liver abscess [Recovered/Resolved]
  - Hepatic mass [Unknown]
  - Anxiety [Unknown]
  - Hepatic pain [Unknown]

NARRATIVE: CASE EVENT DATE: 2016
